FAERS Safety Report 7380651-5 (Version None)
Quarter: 2011Q1

REPORT INFORMATION
  Report Type: 
  Country: None (occurrence: None)
  Receive Date: 20110329
  Receipt Date: 20110317
  Transmission Date: 20110831
  Serious: Yes (Death)
  Sender: FDA-Public Use
  Company Number: DE-ACTELION-A-CH2011-46463

PATIENT

DRUGS (4)
  1. RIFAMPICIN [Interacting]
  2. VENTAVIS [Concomitant]
     Indication: PULMONARY ARTERIAL HYPERTENSION
  3. TRACLEER [Suspect]
     Indication: PULMONARY ARTERIAL HYPERTENSION
     Dosage: UNK , UNK
     Route: 048
  4. SILDENAFIL [Concomitant]

REACTIONS (3)
  - TUBERCULOSIS [None]
  - PULMONARY ARTERIAL HYPERTENSION [None]
  - DRUG INTERACTION [None]
